FAERS Safety Report 18128278 (Version 1)
Quarter: 2020Q3

REPORT INFORMATION
  Report Type: Spontaneous
  Country: US (occurrence: US)
  Receive Date: 20200807
  Receipt Date: 20200807
  Transmission Date: 20201103
  Serious: Yes (Other)
  Sender: FDA-Public Use
  Company Number: None

PATIENT
  Age: 39 Year
  Sex: Female
  Weight: 54 kg

DRUGS (7)
  1. LAMOTRIGINE. [Suspect]
     Active Substance: LAMOTRIGINE
     Indication: EPILEPSY
     Dates: start: 20200120, end: 20200325
  2. ASPIRIN. [Concomitant]
     Active Substance: ASPIRIN
  3. TOPAMAX [Concomitant]
     Active Substance: TOPIRAMATE
  4. DONEPEZIL. [Concomitant]
     Active Substance: DONEPEZIL
  5. CLARITIN [Concomitant]
     Active Substance: LORATADINE
  6. FLINTSTONES GUMMIES MULTIVITAMINS [Concomitant]
  7. FLUTICASONE PROPIONATE. [Concomitant]
     Active Substance: FLUTICASONE PROPIONATE

REACTIONS (6)
  - Dysgeusia [None]
  - Constipation [None]
  - Ischaemia [None]
  - Chest pain [None]
  - Epilepsy [None]
  - Diarrhoea [None]
